FAERS Safety Report 9424543 (Version 1)
Quarter: 2013Q3

REPORT INFORMATION
  Report Type: Spontaneous
  Country: US (occurrence: None)
  Receive Date: 20130726
  Receipt Date: 20130726
  Transmission Date: 20140515
  Serious: Yes (Hospitalization)
  Sender: FDA-Public Use
  Company Number: None

PATIENT
  Age: 58 None
  Sex: Male

DRUGS (1)
  1. ZYTIGA [Suspect]
     Indication: PROSTATIC DISORDER
     Route: 048
     Dates: start: 20130703, end: 20130719

REACTIONS (4)
  - Nausea [None]
  - Abdominal discomfort [None]
  - Pancreatitis [None]
  - Gallbladder disorder [None]
